FAERS Safety Report 24636629 (Version 2)
Quarter: 2024Q4

REPORT INFORMATION
  Report Type: Report from Study
  Country: US (occurrence: US)
  Receive Date: 20241119
  Receipt Date: 20241126
  Transmission Date: 20250115
  Serious: No
  Sender: SANDOZ
  Company Number: US-SANDOZ-SDZ2024US096141

PATIENT
  Sex: Female

DRUGS (4)
  1. OMNITROPE [Suspect]
     Active Substance: SOMATROPIN
     Indication: Hypopituitarism
     Dosage: 1.5 MG, QD,ONCE DAILY
     Route: 058
     Dates: start: 20241111, end: 20241118
  2. OMNITROPE [Suspect]
     Active Substance: SOMATROPIN
     Indication: Hypopituitarism
     Dosage: 1.5 MG, QD,ONCE DAILY
     Route: 058
     Dates: start: 20241111, end: 20241118
  3. OMNITROPE [Suspect]
     Active Substance: SOMATROPIN
     Indication: Hypopituitarism
     Dosage: 1.5 MG, QD,ONCE DAILY
     Route: 058
     Dates: start: 20241111, end: 20241118
  4. OMNITROPE [Suspect]
     Active Substance: SOMATROPIN
     Indication: Hypopituitarism
     Dosage: 1.5 MG, QD,ONCE DAILY
     Route: 058
     Dates: start: 20241111, end: 20241118

REACTIONS (4)
  - Wrong technique in product usage process [Unknown]
  - Poor quality device used [Unknown]
  - Device leakage [Unknown]
  - Device issue [Unknown]
